FAERS Safety Report 13524801 (Version 1)
Quarter: 2017Q2

REPORT INFORMATION
  Report Type: Spontaneous
  Country: US (occurrence: US)
  Receive Date: 20170508
  Receipt Date: 20170508
  Transmission Date: 20170830
  Serious: No
  Sender: FDA-Public Use
  Company Number: US-ROCHE-1123499

PATIENT
  Sex: Female

DRUGS (4)
  1. CARBOPLATIN. [Concomitant]
     Active Substance: CARBOPLATIN
     Route: 065
     Dates: end: 200603
  2. TAXOL [Concomitant]
     Active Substance: PACLITAXEL
     Route: 065
     Dates: end: 200603
  3. AVASTIN [Suspect]
     Active Substance: BEVACIZUMAB
     Indication: LUNG NEOPLASM MALIGNANT
     Route: 065
     Dates: end: 200603
  4. AVASTIN [Suspect]
     Active Substance: BEVACIZUMAB
     Dosage: ON AN UNSPECIFIED DATE, CONTINUED ON AVASTIN SINGLE AGENT
     Route: 065

REACTIONS (4)
  - Disease progression [Unknown]
  - Dysphonia [Unknown]
  - Weight decreased [Unknown]
  - Emotional distress [Unknown]
